FAERS Safety Report 20016198 (Version 1)
Quarter: 2021Q4

REPORT INFORMATION
  Report Type: Spontaneous
  Country: US (occurrence: None)
  Receive Date: 20211102
  Receipt Date: 20211102
  Transmission Date: 20220303
  Serious: Yes (Other)
  Sender: FDA-Public Use
  Company Number: None

PATIENT
  Sex: Female
  Weight: 107.5 kg

DRUGS (1)
  1. LEVETIRACETAM [Suspect]
     Active Substance: LEVETIRACETAM
     Indication: Seizure
     Dosage: OTHER STRENGTH : 750;?OTHER FREQUENCY : FOUR TIMES A DAILY;?
     Route: 048
     Dates: start: 2005

REACTIONS (2)
  - Epilepsy [None]
  - Product substitution issue [None]

NARRATIVE: CASE EVENT DATE: 20050101
